FAERS Safety Report 13469689 (Version 2)
Quarter: 2024Q2

REPORT INFORMATION
  Report Type: Spontaneous
  Country: US (occurrence: US)
  Receive Date: 20170422
  Receipt Date: 20240426
  Transmission Date: 20240716
  Serious: No
  Sender: FDA-Public Use
  Company Number: US-JNJFOC-20170419494

PATIENT
  Sex: Male

DRUGS (2)
  1. RISPERDAL [Suspect]
     Active Substance: RISPERIDONE
     Indication: Sleep disorder
     Dosage: VARYING DOSES OF 0.125, 0.25 MG AND 0.5 MG
     Route: 048
  2. RISPERDAL [Suspect]
     Active Substance: RISPERIDONE
     Indication: Post-traumatic stress disorder

REACTIONS (4)
  - Weight increased [Unknown]
  - Increased appetite [Unknown]
  - Product use in unapproved indication [Unknown]
  - Off label use [Unknown]
